FAERS Safety Report 8905503 (Version 2)
Quarter: 2012Q4

REPORT INFORMATION
  Report Type: Report from Study
  Country: US (occurrence: US)
  Receive Date: 20121109
  Receipt Date: 20121129
  Transmission Date: 20130627
  Serious: Yes (Other)
  Sender: FDA-Public Use
  Company Number: US-ABBOTT-12P-163-0986658-00

PATIENT
  Age: 63 Year
  Sex: Female

DRUGS (15)
  1. HUMIRA [Suspect]
     Indication: CROHN^S DISEASE
     Dosage: First Loading dose
     Dates: start: 20120921, end: 20120921
  2. HUMIRA [Suspect]
  3. ASACOL [Concomitant]
     Indication: CROHN^S DISEASE
     Dosage: 3 Tabs BID
  4. CALCIUM [Concomitant]
     Indication: OSTEOPOROSIS
  5. MECLIZINE [Concomitant]
     Indication: PRODUCT USED FOR UNKNOWN INDICATION
  6. CO Q 10 [Concomitant]
  7. MULTIVITAMIN [Concomitant]
     Dosage: Daily
  8. TOPAMAX [Concomitant]
     Dosage: 50 mg at bedtime
  9. TRICOR [Concomitant]
  10. NEXIUM [Concomitant]
  11. IMITREX [Concomitant]
  12. HYDROCODONE [Concomitant]
  13. SERTRALINE [Concomitant]
  14. PREDNISONE [Concomitant]
  15. PREDNISONE [Concomitant]
     Dosage: decreased to 5 mg daily
     Route: 048

REACTIONS (5)
  - Renal failure [Not Recovered/Not Resolved]
  - Renal failure [Unknown]
  - Pollakiuria [Not Recovered/Not Resolved]
  - Oliguria [Not Recovered/Not Resolved]
  - Rash [Recovered/Resolved]
